FAERS Safety Report 5826329-8 (Version None)
Quarter: 2008Q3

REPORT INFORMATION
  Report Type: 
  Country: None (occurrence: None)
  Receive Date: 20080729
  Receipt Date: 20080717
  Transmission Date: 20090109
  Serious: Yes (Hospitalization)
  Sender: FDA-Public Use
  Company Number: NL-PFIZER INC-2008060356

PATIENT
  Sex: Female
  Weight: 75 kg

DRUGS (3)
  1. LYRICA [Suspect]
     Indication: PAIN
     Route: 048
     Dates: start: 20080501, end: 20080624
  2. FUROSEMIDE [Suspect]
     Indication: OEDEMA
     Route: 048
  3. METOCLOPRAMIDE [Concomitant]
     Route: 048

REACTIONS (1)
  - HYPONATRAEMIA [None]
